FAERS Safety Report 7269042 (Version 2)
Quarter: 2013Q3

REPORT INFORMATION
  Report Type: Report from Study
  Country: US (occurrence: US)
  Receive Date: 20100202
  Receipt Date: 20130913
  Transmission Date: 20140515
  Serious: Yes (Congenital Anomaly)
  Sender: FDA-Public Use
  Company Number: US-ABBOTT-10P-163-0620926-00

PATIENT
  Age: 0 Day
  Sex: Female
  Weight: 3.2 kg

DRUGS (6)
  1. NORVIR SOFT GELATIN CAPSULES [Suspect]
     Indication: MATERNAL EXPOSURE TIMING UNSPECIFIED
     Route: 064
  2. KALETRA TABLETS [Suspect]
     Indication: MATERNAL EXPOSURE TIMING UNSPECIFIED
     Route: 064
  3. EMTRICITABINE W/TENOFOVIR DISOPROXIL FUMARATE [Suspect]
     Indication: MATERNAL EXPOSURE TIMING UNSPECIFIED
     Route: 064
  4. ATAZANAVIR SULFATE [Suspect]
     Indication: MATERNAL EXPOSURE TIMING UNSPECIFIED
     Route: 064
  5. ATAZANAVIR SULFATE [Suspect]
     Route: 064
     Dates: start: 20090508
  6. ZIDOVUDINE [Suspect]
     Indication: MATERNAL EXPOSURE TIMING UNSPECIFIED
     Route: 064

REACTIONS (6)
  - Congenital anomaly [Unknown]
  - Acrochordon [Unknown]
  - Skull malformation [Unknown]
  - Accessory auricle [Unknown]
  - Ear disorder [Unknown]
  - Foetal exposure during pregnancy [Unknown]
